FAERS Safety Report 9606361 (Version 2)
Quarter: 2014Q2

REPORT INFORMATION
  Report Type: Spontaneous
  Country: US (occurrence: US)
  Receive Date: 20131008
  Receipt Date: 20140610
  Transmission Date: 20141212
  Serious: Yes (Hospitalization, Other)
  Sender: FDA-Public Use
  Company Number: US-AMGEN-USASP2013048714

PATIENT
  Age: 78 Year
  Sex: Female

DRUGS (5)
  1. PROLIA [Suspect]
     Indication: OSTEOPOROSIS POSTMENOPAUSAL
     Dosage: UNK UNK, Q6MO
     Route: 065
     Dates: start: 2013
  2. VITAMIN D                          /00107901/ [Concomitant]
  3. CALCIUM [Concomitant]
  4. MULTIVITAMIN                       /00097801/ [Concomitant]
  5. TAMOXIFEN [Concomitant]

REACTIONS (8)
  - Wrist fracture [Unknown]
  - Lower limb fracture [Unknown]
  - Road traffic accident [Unknown]
  - Upper limb fracture [Unknown]
  - Ankle fracture [Unknown]
  - Bone disorder [Unknown]
  - Fatigue [Unknown]
  - Myalgia [Recovered/Resolved]
